FAERS Safety Report 6900163-X (Version None)
Quarter: 2010Q3

REPORT INFORMATION
  Report Type: 
  Country: None (occurrence: None)
  Receive Date: 20100803
  Receipt Date: 20100722
  Transmission Date: 20110219
  Serious: Yes (Hospitalization)
  Sender: FDA-Public Use
  Company Number: FR-WYE-H16442810

PATIENT
  Age: 52 Year
  Sex: Female

DRUGS (5)
  1. PANTOPRAZOLE SODIUM [Suspect]
     Dosage: UNSPECIFIED
     Route: 065
     Dates: start: 20100504, end: 20100527
  2. CALCIPARINE ^DIFREX^ [Suspect]
     Dosage: UNSPECIFIED
     Route: 058
     Dates: start: 20100511, end: 20100525
  3. DOXYCYCLINE [Suspect]
     Dosage: UNSPECIFIED
     Route: 042
     Dates: start: 20100510, end: 20100517
  4. NOCTRAN 10 [Suspect]
     Dosage: 10 MILLIGRAM, TABLETS, FREQUENCY UNSPECIFIED
     Route: 048
     Dates: start: 20100504, end: 20100610
  5. VANCOMYCIN [Suspect]
     Dosage: 2 GM DAILY
     Route: 042
     Dates: start: 20100510, end: 20100525

REACTIONS (2)
  - CHOLESTASIS [None]
  - CYTOLYTIC HEPATITIS [None]
